FAERS Safety Report 9248729 (Version 1)
Quarter: 2013Q2

REPORT INFORMATION
  Report Type: Report from Study
  Country: US (occurrence: US)
  Receive Date: 20130423
  Receipt Date: 20130423
  Transmission Date: 20140414
  Serious: Yes (Other)
  Sender: FDA-Public Use
  Company Number: US-ROCHE-1212245

PATIENT
  Sex: 0

DRUGS (3)
  1. BEVACIZUMAB [Suspect]
     Indication: BRAIN NEOPLASM
     Route: 042
  2. BEVACIZUMAB [Suspect]
     Indication: MENINGIOMA
  3. BEVACIZUMAB [Suspect]
     Indication: HEAD AND NECK CANCER

REACTIONS (3)
  - Dysphagia [Unknown]
  - Convulsion [Unknown]
  - Thrombosis [Unknown]
